FAERS Safety Report 8001898-0 (Version None)
Quarter: 2011Q4

REPORT INFORMATION
  Report Type: 
  Country: None (occurrence: None)
  Receive Date: 20111222
  Receipt Date: 20111214
  Transmission Date: 20120403
  Serious: Yes (Hospitalization)
  Sender: FDA-Public Use
  Company Number: US-SANOFI-AVENTIS-2011SA082211

PATIENT
  Sex: Female

DRUGS (4)
  1. PROTONIX [Concomitant]
  2. FERROUS SULFATE TAB [Concomitant]
  3. PLAVIX [Suspect]
  4. ZANTAC [Suspect]
     Route: 048

REACTIONS (8)
  - SURGERY [None]
  - DYSPEPSIA [None]
  - FATIGUE [None]
  - ANXIETY [None]
  - BLOOD IRON DECREASED [None]
  - ABDOMINAL PAIN [None]
  - CONSTIPATION [None]
  - FEELING ABNORMAL [None]
